FAERS Safety Report 25977233 (Version 4)
Quarter: 2025Q4

REPORT INFORMATION
  Report Type: Spontaneous
  Country: US (occurrence: US)
  Receive Date: 20251030
  Receipt Date: 20251202
  Transmission Date: 20260117
  Serious: No
  Sender: SANDOZ
  Company Number: US-SANDOZ-SDZ2025US080079

PATIENT
  Sex: Female

DRUGS (1)
  1. ESTRADIOL [Suspect]
     Active Substance: ESTRADIOL
     Indication: Product used for unknown indication
     Dosage: UNK, Q2W
     Route: 062
     Dates: start: 200307

REACTIONS (7)
  - Pigmentation disorder [Unknown]
  - Mass [Unknown]
  - Application site bruise [Unknown]
  - Rash [Unknown]
  - Pruritus [Unknown]
  - Product adhesion issue [Unknown]
  - Device adhesion issue [Unknown]
